FAERS Safety Report 9108547 (Version 1)
Quarter: 2013Q1

REPORT INFORMATION
  Report Type: Report from Study
  Country: US (occurrence: US)
  Receive Date: 20130222
  Receipt Date: 20130222
  Transmission Date: 20140127
  Serious: Yes (Other)
  Sender: FDA-Public Use
  Company Number: US-ABBOTT-13P-163-1049456-00

PATIENT
  Sex: Male
  Weight: 118.04 kg

DRUGS (10)
  1. NIASPAN (COATED) [Suspect]
     Indication: STENT PLACEMENT
     Dates: start: 1999
  2. NIASPAN (COATED) [Suspect]
     Indication: BLOOD CHOLESTEROL ABNORMAL
     Dates: start: 20130207
  3. ASA [Concomitant]
     Indication: PRODUCT USED FOR UNKNOWN INDICATION
  4. MVT [Concomitant]
     Indication: PRODUCT USED FOR UNKNOWN INDICATION
  5. FISH OIL [Concomitant]
     Indication: PRODUCT USED FOR UNKNOWN INDICATION
  6. METOPROLOL [Concomitant]
     Indication: PRODUCT USED FOR UNKNOWN INDICATION
  7. RAMIPRIL [Concomitant]
     Indication: PRODUCT USED FOR UNKNOWN INDICATION
  8. POTASSIUM [Concomitant]
     Indication: MINERAL SUPPLEMENTATION
  9. MAGNESIUM [Concomitant]
     Indication: MINERAL SUPPLEMENTATION
  10. CALCIUM [Concomitant]
     Indication: MINERAL SUPPLEMENTATION

REACTIONS (7)
  - Chest pain [Recovered/Resolved]
  - Myalgia [Not Recovered/Not Resolved]
  - Muscle spasms [Not Recovered/Not Resolved]
  - Influenza [Recovered/Resolved]
  - Flushing [Not Recovered/Not Resolved]
  - Abdominal pain upper [Recovered/Resolved]
  - Coronary arterial stent insertion [Recovered/Resolved]
